FAERS Safety Report 10225207 (Version 1)
Quarter: 2014Q2

REPORT INFORMATION
  Report Type: Spontaneous
  Country: FR (occurrence: FR)
  Receive Date: 20140609
  Receipt Date: 20140609
  Transmission Date: 20141212
  Serious: Yes (Other)
  Sender: FDA-Public Use
  Company Number: FR-MYLANLABS-2014S1012308

PATIENT
  Sex: Female

DRUGS (2)
  1. TRAMADOL [Suspect]
     Indication: BACK PAIN
     Route: 048
     Dates: start: 201405, end: 201405
  2. PREVISCAN /00789001/ [Suspect]

REACTIONS (3)
  - Eye haemorrhage [Unknown]
  - Ecchymosis [Unknown]
  - Drug interaction [Unknown]
